FAERS Safety Report 12058539 (Version 1)
Quarter: 2016Q1

REPORT INFORMATION
  Report Type: Spontaneous
  Country: US (occurrence: US)
  Receive Date: 20160210
  Receipt Date: 20160210
  Transmission Date: 20160526
  Serious: Yes (Hospitalization, Other)
  Sender: FDA-Public Use
  Company Number: US-ACCORD-037768

PATIENT
  Age: 39 Year
  Sex: Female

DRUGS (5)
  1. OLANZAPINE. [Suspect]
     Active Substance: OLANZAPINE
     Indication: PSYCHOTIC DISORDER
  2. HALOPERIDOL. [Suspect]
     Active Substance: HALOPERIDOL
     Indication: PSYCHOTIC DISORDER
  3. TRIENTINE [Suspect]
     Active Substance: TRIENTINE
     Indication: HEPATO-LENTICULAR DEGENERATION
  4. QUETIAPINE [Suspect]
     Active Substance: QUETIAPINE
     Indication: PSYCHOTIC DISORDER
     Dosage: ALSO RECEIVED AT THE DOSE OF 25 MG, REDUCED TO 12.5MG, TITRATED TO 75MG AND INCREASED TO 400MG.
  5. ZINC OXIDE. [Concomitant]
     Active Substance: ZINC OXIDE
     Indication: HEPATO-LENTICULAR DEGENERATION

REACTIONS (5)
  - Colitis [Recovered/Resolved]
  - Parkinsonism [Recovered/Resolved]
  - Dystonia [Unknown]
  - Sedation [Unknown]
  - Orthostatic hypotension [Unknown]
